FAERS Safety Report 13656623 (Version 1)
Quarter: 2017Q2

REPORT INFORMATION
  Report Type: Spontaneous
  Country: US (occurrence: US)
  Receive Date: 20170615
  Receipt Date: 20170615
  Transmission Date: 20170830
  Serious: Yes (Death, Hospitalization)
  Sender: FDA-Public Use
  Company Number: US-B.I. PHARMACEUTICALS,INC./RIDGEFIELD-2017-BI-033279

PATIENT
  Age: 74 Year
  Sex: Female

DRUGS (1)
  1. PRADAXA [Suspect]
     Active Substance: DABIGATRAN ETEXILATE MESYLATE
     Indication: ATRIAL FIBRILLATION
     Route: 065

REACTIONS (12)
  - Internal haemorrhage [Fatal]
  - Fall [Unknown]
  - Contusion [Unknown]
  - Anaemia [Fatal]
  - Haematuria [Unknown]
  - Hypovolaemic shock [Fatal]
  - Metabolic acidosis [Fatal]
  - Respiratory failure [Fatal]
  - Haemorrhage [Fatal]
  - Rib fracture [Fatal]
  - Injury [Fatal]
  - Cardiac failure [Fatal]

NARRATIVE: CASE EVENT DATE: 20110414
